FAERS Safety Report 7633738-3 (Version None)
Quarter: 2011Q3

REPORT INFORMATION
  Report Type: 
  Country: None (occurrence: None)
  Receive Date: 20110714
  Receipt Date: 20101015
  Transmission Date: 20111222
  Serious: Yes (Other)
  Sender: FDA-Public Use
  Company Number: 2010SP055650

PATIENT
  Sex: Male

DRUGS (2)
  1. HEPARIN [Concomitant]
  2. INTEGRILIN [Suspect]
     Indication: ANTIPLATELET THERAPY
     Dosage: IV
     Route: 042
     Dates: start: 20101013

REACTIONS (1)
  - THROMBOCYTOPENIA [None]
